FAERS Safety Report 8899429 (Version 2)
Quarter: 2012Q4

REPORT INFORMATION
  Report Type: Report from Study
  Country: DK (occurrence: DK)
  Receive Date: 20121109
  Receipt Date: 20121231
  Transmission Date: 20130627
  Serious: Yes (Hospitalization)
  Sender: FDA-Public Use
  Company Number: DK-ROCHE-1152594

PATIENT

DRUGS (3)
  1. OXALIPLATIN [Suspect]
     Indication: GASTRIC CANCER
     Dosage: last dose prior to SAE was on 30/Mar/2011.
     Route: 065
     Dates: start: 20110330
  2. DOCETAXEL [Suspect]
     Indication: GASTRIC CANCER
     Dosage: last dose prior to SAE was on 30/Mar/2011.
     Route: 065
     Dates: start: 20110330
  3. CAPECITABINE [Suspect]
     Indication: GASTRIC CANCER
     Dosage: last dose prior to SAE was on 30/Mar/2011.
     Route: 065
     Dates: start: 20110330

REACTIONS (6)
  - Nausea [Recovered/Resolved]
  - Oedema [Recovered/Resolved]
  - Nausea [Recovered/Resolved]
  - Vomiting [Recovered/Resolved]
  - Device issue [Recovered/Resolved]
  - Dehydration [Recovered/Resolved]
